FAERS Safety Report 12007765 (Version 1)
Quarter: 2016Q1

REPORT INFORMATION
  Report Type: Other
  Country: IN (occurrence: IN)
  Receive Date: 20160204
  Receipt Date: 20160204
  Transmission Date: 20160526
  Serious: Yes (Death)
  Sender: FDA-Public Use
  Company Number: IN-NSR_02221_2015

PATIENT
  Age: 14 Year
  Sex: Female
  Weight: 25 kg

DRUGS (4)
  1. SUCCINYLCHOLINE [Suspect]
     Active Substance: SUCCINYLCHOLINE
     Indication: ANAESTHESIA
     Dosage: 1.5 MG/KG; ONCE
     Route: 042
  2. FENTANYL. [Concomitant]
     Active Substance: FENTANYL
     Indication: ANAESTHESIA
     Dosage: 1.5 MICROGRAMS/KG; ONCE
     Route: 042
  3. THIOPENTONE SODIUM [Concomitant]
     Active Substance: THIOPENTAL SODIUM
     Indication: ANAESTHESIA
     Dosage: 5 MG/KG; ONCE
     Route: 042
  4. PROPRANOLOL [Suspect]
     Active Substance: PROPRANOLOL\PROPRANOLOL HYDROCHLORIDE
     Indication: PORTAL VEIN OCCLUSION
     Route: 048

REACTIONS (2)
  - Temporomandibular joint syndrome [Recovered/Resolved]
  - Hyperkalaemia [Fatal]
